FAERS Safety Report 9281185 (Version 2)
Quarter: 2013Q4

REPORT INFORMATION
  Report Type: Report from Study
  Country: TH (occurrence: TH)
  Receive Date: 20130509
  Receipt Date: 20131003
  Transmission Date: 20140711
  Serious: Yes (Hospitalization, Other)
  Sender: FDA-Public Use
  Company Number: PHHY2013TH044222

PATIENT
  Age: 50 Year
  Sex: Male

DRUGS (2)
  1. ZOMETA [Suspect]
     Indication: METASTASES TO BONE
     Dosage: 4 MG, MONTHLY
     Route: 041
  2. ZOMETA [Suspect]
     Dosage: UNK UKN, UNK
     Dates: start: 20130403, end: 20130403

REACTIONS (10)
  - Intervertebral disc protrusion [Not Recovered/Not Resolved]
  - Hypoaesthesia [Unknown]
  - Abasia [Unknown]
  - Sensory loss [Unknown]
  - Back pain [Unknown]
  - Chest pain [Unknown]
  - Decubitus ulcer [Recovering/Resolving]
  - Nerve compression [Unknown]
  - Infection [Unknown]
  - Prostate cancer [Not Recovered/Not Resolved]
